FAERS Safety Report 9726374 (Version 1)
Quarter: 2013Q4

REPORT INFORMATION
  Report Type: Spontaneous
  Country: US (occurrence: None)
  Receive Date: 20131202
  Receipt Date: 20131202
  Transmission Date: 20140711
  Serious: Yes (Hospitalization)
  Sender: FDA-Public Use
  Company Number: None

PATIENT
  Age: 44 Year
  Sex: Male
  Weight: 97.7 kg

DRUGS (6)
  1. CIPROFLOXACIN [Suspect]
     Indication: URINARY TRACT INFECTION
     Route: 048
  2. CIPRO [Concomitant]
  3. FELBATOL [Concomitant]
  4. VIMPAT [Concomitant]
  5. VALPROIC ACID [Concomitant]
  6. ZONEGRAN [Concomitant]

REACTIONS (1)
  - Convulsion [None]
